FAERS Safety Report 9219706 (Version 1)
Quarter: 2013Q2

REPORT INFORMATION
  Report Type: Report from Study
  Country: CA (occurrence: CA)
  Receive Date: 20130409
  Receipt Date: 20130409
  Transmission Date: 20140414
  Serious: Yes (Hospitalization)
  Sender: FDA-Public Use
  Company Number: CA-JNJFOC-20121113399

PATIENT
  Age: 41 Year
  Sex: Male
  Weight: 85 kg

DRUGS (9)
  1. REMICADE [Suspect]
     Indication: BEHCET^S SYNDROME
     Route: 042
     Dates: end: 20121113
  2. REMICADE [Suspect]
     Indication: BEHCET^S SYNDROME
     Route: 042
     Dates: start: 20110201
  3. COLCHICINE [Concomitant]
     Route: 065
  4. ASA [Concomitant]
     Route: 065
  5. CALCIUM [Concomitant]
     Route: 065
  6. VIT D [Concomitant]
     Route: 065
  7. CITALOPRAM [Concomitant]
     Route: 065
  8. RAMIPRIL [Concomitant]
     Route: 065
  9. ZOPICLONE [Concomitant]
     Route: 065

REACTIONS (3)
  - Large intestine perforation [Recovering/Resolving]
  - Incision site haematoma [Recovering/Resolving]
  - Off label use [Unknown]
